FAERS Safety Report 4996504-3 (Version None)
Quarter: 2006Q2

REPORT INFORMATION
  Report Type: 
  Country: None (occurrence: None)
  Receive Date: 20060505
  Receipt Date: 20060427
  Transmission Date: 20061013
  Serious: Yes (Death)
  Sender: FDA-Public Use
  Company Number: 163-20785-06040119

PATIENT
  Age: 73 Year
  Sex: Male

DRUGS (2)
  1. THALOMID [Suspect]
     Indication: MULTIPLE MYELOMA
     Dosage: 50-200MG, QHS, ORAL
     Route: 048
     Dates: start: 20041001, end: 20050401
  2. THALOMID [Suspect]

REACTIONS (3)
  - DIALYSIS [None]
  - DISEASE PROGRESSION [None]
  - RENAL FAILURE [None]
